FAERS Safety Report 23467081 (Version 1)
Quarter: 2024Q1

REPORT INFORMATION
  Report Type: Spontaneous
  Country: US (occurrence: US)
  Receive Date: 20240201
  Receipt Date: 20240201
  Transmission Date: 20240409
  Serious: No
  Sender: FDA-Public Use
  Company Number: US-PAIPHARMA-2023-US-026945

PATIENT
  Age: 81 Year
  Sex: Female
  Weight: 61.69 kg

DRUGS (8)
  1. NYSTATIN [Suspect]
     Active Substance: NYSTATIN
     Indication: Candida infection
     Dosage: 5 ML EVERY 4 HOURS
     Route: 048
     Dates: start: 20230827, end: 20230827
  2. VERAPAMIL [Concomitant]
     Active Substance: VERAPAMIL HYDROCHLORIDE
  3. SYNTHROID [Concomitant]
     Active Substance: LEVOTHYROXINE SODIUM
  4. XANAX [Concomitant]
     Active Substance: ALPRAZOLAM
  5. COLON HEALTH [Concomitant]
  6. ASPIRIN [Concomitant]
     Active Substance: ASPIRIN
  7. CALCIUM CITRATE [Concomitant]
     Active Substance: CALCIUM CITRATE
  8. ADVIL [Concomitant]
     Active Substance: IBUPROFEN

REACTIONS (3)
  - Gingival discomfort [Recovered/Resolved]
  - Oral discomfort [Recovered/Resolved]
  - Off label use [Recovered/Resolved]

NARRATIVE: CASE EVENT DATE: 20230827
